FAERS Safety Report 4507535-1 (Version None)
Quarter: 2004Q4

REPORT INFORMATION
  Report Type: 
  Country: None (occurrence: None)
  Receive Date: 20041118
  Receipt Date: 20041105
  Transmission Date: 20050328
  Serious: Yes (Life-Threatening)
  Sender: FDA-Public Use
  Company Number: 2004089962

PATIENT
  Age: 32 Year
  Sex: Female

DRUGS (2)
  1. LUSTRAL (SERTRALINE) [Suspect]
     Indication: DEPRESSION
     Dosage: 100 MG (100 MG, 1 IN 1 D), ORAL
     Route: 048
     Dates: start: 20041011, end: 20041014
  2. MIRTAZAPINE [Concomitant]

REACTIONS (1)
  - ANAPHYLACTIC SHOCK [None]
